FAERS Safety Report 7324023-8 (Version None)
Quarter: 2011Q1

REPORT INFORMATION
  Report Type: 
  Country: None (occurrence: None)
  Receive Date: 20110301
  Receipt Date: 20110210
  Transmission Date: 20110831
  Serious: Yes (Hospitalization)
  Sender: FDA-Public Use
  Company Number: US-ABBOTT-11P-163-0704209-00

PATIENT
  Age: 45 Year
  Sex: Male

DRUGS (18)
  1. PREDNISONE [Concomitant]
     Dosage: 60 MG DAILY
  2. AZITHROMYCIN [Concomitant]
     Indication: PRODUCT USED FOR UNKNOWN INDICATION
  3. EFAVIRENZ [Concomitant]
     Indication: ANTIRETROVIRAL THERAPY
     Dosage: 600 MG DAILY
  4. AZITHROMYCIN [Concomitant]
     Indication: HIV INFECTION
  5. TRIMETHOPRIM + SULFAMETHOXAZOLE [Concomitant]
     Indication: PRODUCT USED FOR UNKNOWN INDICATION
  6. RITONAVIR [Suspect]
     Indication: ANTIRETROVIRAL THERAPY
  7. LAMIVUDINE [Concomitant]
     Indication: ANTIRETROVIRAL THERAPY
     Route: 048
  8. PREDNISONE [Concomitant]
     Dosage: 50 MG DAILY
  9. LAMIVUDINE [Concomitant]
     Dosage: DAILY
  10. ABACAVIR [Concomitant]
     Indication: ANTIRETROVIRAL THERAPY
     Route: 048
  11. NIFEDIPINE [Concomitant]
     Indication: PRODUCT USED FOR UNKNOWN INDICATION
  12. VALACYCLOVIR [Concomitant]
     Indication: PRODUCT USED FOR UNKNOWN INDICATION
  13. ZIDOVUDINE [Concomitant]
     Indication: ANTIRETROVIRAL THERAPY
     Route: 048
  14. PREDNISONE [Concomitant]
     Indication: PRODUCT USED FOR UNKNOWN INDICATION
  15. LOPINAVIR/RITONAVIR [Suspect]
     Indication: ANTIRETROVIRAL THERAPY
     Dosage: 200 MG/50 MG 2 TABLETS TWICE A DAY
     Route: 048
  16. ATAZANAVIR [Concomitant]
     Indication: ANTIRETROVIRAL THERAPY
     Route: 048
  17. LAMIVUDINE + ZIDOVUDINE [Concomitant]
     Indication: ANTIRETROVIRAL THERAPY
     Dosage: 150 MG/ 300 MG TWICE A DAY
     Route: 048
  18. PENTAMIDINE ISETHIONATE [Concomitant]
     Indication: PRODUCT USED FOR UNKNOWN INDICATION
     Route: 055

REACTIONS (1)
  - RENAL TUBULAR DISORDER [None]
